FAERS Safety Report 25116390 (Version 1)
Quarter: 2025Q1

REPORT INFORMATION
  Report Type: Spontaneous
  Country: US (occurrence: US)
  Receive Date: 20250325
  Receipt Date: 20250325
  Transmission Date: 20250408
  Serious: No
  Sender: BRISTOL-MYERS SQUIBB COMPANY
  Company Number: US-BRISTOL-MYERS SQUIBB COMPANY-2025-042868

PATIENT
  Age: 73 Year
  Sex: Female
  Weight: 91.63 kg

DRUGS (1)
  1. POMALYST [Suspect]
     Active Substance: POMALIDOMIDE
     Indication: Plasma cell myeloma in remission
     Dosage: DAILY FOR 21 DAYS AND 7 DAYS OFF
     Route: 048

REACTIONS (4)
  - Vision blurred [Unknown]
  - Pain [Unknown]
  - Constipation [Unknown]
  - Hypoaesthesia [Unknown]
